FAERS Safety Report 4766223-7 (Version None)
Quarter: 2005Q3

REPORT INFORMATION
  Report Type: 
  Country: None (occurrence: None)
  Receive Date: 20050909
  Receipt Date: 20050825
  Transmission Date: 20060218
  Serious: Yes (Other)
  Sender: FDA-Public Use
  Company Number: B0392839A

PATIENT
  Sex: Female

DRUGS (1)
  1. PAXIL [Suspect]
     Dosage: TRANSPLACENTARY
     Route: 064

REACTIONS (5)
  - DRUG EXPOSURE DURING PREGNANCY [None]
  - INTRAVENTRICULAR HAEMORRHAGE NEONATAL [None]
  - NERVOUS SYSTEM DISORDER [None]
  - PREMATURE BABY [None]
  - SUBARACHNOID HAEMORRHAGE NEONATAL [None]
